FAERS Safety Report 6395472-X (Version None)
Quarter: 2009Q4

REPORT INFORMATION
  Report Type: 
  Country: None (occurrence: None)
  Receive Date: 20091009
  Receipt Date: 20090924
  Transmission Date: 20100525
  Serious: Yes (Other)
  Sender: FDA-Public Use
  Company Number: FR-ASTRAZENECA-2009SE13707

PATIENT
  Age: 18 Year
  Sex: Female

DRUGS (1)
  1. SYMBICORT [Suspect]
     Indication: ASTHMA
     Dosage: ONE INHALATION PER DAY
     Route: 055
     Dates: start: 20090914, end: 20090915

REACTIONS (1)
  - DERMATITIS ALLERGIC [None]
